FAERS Safety Report 5088608-4 (Version None)
Quarter: 2006Q3

REPORT INFORMATION
  Report Type: 
  Country: None (occurrence: None)
  Receive Date: 20060825
  Receipt Date: 20060821
  Transmission Date: 20061208
  Serious: Yes (Other)
  Sender: FDA-Public Use
  Company Number: CH-JNJFOC-20060801904

PATIENT
  Sex: Male
  Weight: 70 kg

DRUGS (6)
  1. RISPERDAL [Suspect]
     Route: 048
  2. RISPERDAL [Suspect]
     Indication: AUTISM
     Route: 048
  3. TEMESTA [Concomitant]
     Route: 048
  4. TEMESTA [Concomitant]
     Route: 048
  5. TEMESTA [Concomitant]
     Route: 048
  6. TEMESTA [Concomitant]
     Route: 048

REACTIONS (3)
  - COMA [None]
  - FALL [None]
  - GRAND MAL CONVULSION [None]
